FAERS Safety Report 10073874 (Version 3)
Quarter: 2014Q2

REPORT INFORMATION
  Report Type: Spontaneous
  Country: MY (occurrence: MY)
  Receive Date: 20140412
  Receipt Date: 20140609
  Transmission Date: 20141212
  Serious: Yes (Other)
  Sender: FDA-Public Use
  Company Number: PHHY2014MY043986

PATIENT
  Age: 42 Year
  Sex: Female

DRUGS (2)
  1. DIOVAN [Suspect]
     Indication: HYPERTENSION
     Dosage: 80 MG, DAILY
     Dates: start: 201309
  2. DIOVAN [Suspect]
     Dosage: 80 MG, DAILY
     Dates: start: 20140324, end: 20140329

REACTIONS (8)
  - Stevens-Johnson syndrome [Unknown]
  - Mouth ulceration [Recovered/Resolved]
  - Skin induration [Recovered/Resolved]
  - Erythema [Recovered/Resolved]
  - Rash [Unknown]
  - Hypertension [Unknown]
  - Headache [Unknown]
  - Hypersensitivity [Unknown]
